FAERS Safety Report 9508953 (Version 1)
Quarter: 2013Q3

REPORT INFORMATION
  Report Type: Spontaneous
  Country: US (occurrence: US)
  Receive Date: 20130909
  Receipt Date: 20130909
  Transmission Date: 20140515
  Serious: No
  Sender: FDA-Public Use
  Company Number: US-BRISTOL-MYERS SQUIBB COMPANY-19069939

PATIENT
  Age: 52 Year
  Sex: Female
  Weight: 57.14 kg

DRUGS (9)
  1. ABILIFY [Suspect]
     Indication: BIPOLAR DISORDER
     Dosage: DOSE VALUE:30MG
  2. LEVOXYL [Concomitant]
  3. ATENOLOL [Concomitant]
  4. POTASSIUM [Concomitant]
  5. SUBOXONE [Concomitant]
     Indication: PAIN
  6. TOPAMAX [Concomitant]
  7. VALIUM [Concomitant]
  8. CYMBALTA [Concomitant]
  9. LOMOTIL [Concomitant]

REACTIONS (1)
  - Feeling abnormal [Unknown]
